FAERS Safety Report 18628283 (Version 1)
Quarter: 2020Q4

REPORT INFORMATION
  Report Type: Spontaneous
  Country: US (occurrence: US)
  Receive Date: 20201217
  Receipt Date: 20201217
  Transmission Date: 20210114
  Serious: Yes (Life-Threatening)
  Sender: FDA-Public Use
  Company Number: None

PATIENT
  Age: 65 Year
  Sex: Male
  Weight: 78.75 kg

DRUGS (5)
  1. TAMIFLU [Suspect]
     Active Substance: OSELTAMIVIR PHOSPHATE
     Indication: INFLUENZA
  2. MINERALS [Concomitant]
     Active Substance: MINERALS
  3. VITAMINS [Concomitant]
     Active Substance: VITAMINS
  4. ZINC. [Concomitant]
     Active Substance: ZINC
  5. SELENIUM [Concomitant]
     Active Substance: SELENIUM

REACTIONS (4)
  - Meningitis bacterial [None]
  - Discomfort [None]
  - Nuchal rigidity [None]
  - Feeling abnormal [None]

NARRATIVE: CASE EVENT DATE: 20150505
